FAERS Safety Report 20963307 (Version 1)
Quarter: 2022Q2

REPORT INFORMATION
  Report Type: Report from Study
  Country: IL (occurrence: IL)
  Receive Date: 20220615
  Receipt Date: 20220615
  Transmission Date: 20220721
  Serious: Yes (Other)
  Sender: FDA-Public Use
  Company Number: IL-NOVARTISPH-NVSC2022IL137625

PATIENT
  Age: 47 Year
  Sex: Female

DRUGS (1)
  1. MAYZENT [Suspect]
     Active Substance: SIPONIMOD
     Indication: Relapsing-remitting multiple sclerosis
     Dosage: 2 MG, QD (1*2MG)
     Route: 048
     Dates: start: 20210103

REACTIONS (2)
  - Lymphocyte count decreased [Unknown]
  - Product use in unapproved indication [Unknown]
